FAERS Safety Report 9517393 (Version 1)
Quarter: 2013Q1

REPORT INFORMATION
  Report Type: Spontaneous
  Country: US (occurrence: None)
  Receive Date: 20130305
  Receipt Date: 20130305
  Transmission Date: 20140127
  Serious: Yes (Other)
  Sender: FDA-Public Use
  Company Number: 163-21880-12050423

PATIENT
  Age: 68 Year
  Sex: Female

DRUGS (11)
  1. REVLIMID [Suspect]
     Indication: PLASMA CELL MYELOMA
     Dosage: 21 IN 28 D
     Route: 048
     Dates: start: 200912
  2. CALCIUM W/VITAMIN D (LEKOVIT CA) [Concomitant]
  3. BABY ASPIRIN (ACETYLSALICYLIC ACID) [Concomitant]
  4. LISINOPRIL (LISINOPRIL) [Concomitant]
  5. PRILOSEC [Concomitant]
  6. SULINDAC (SULINDAC) [Concomitant]
  7. LUNESTA (ESZOPICLONE) [Concomitant]
  8. HYDRALAZINE (HYDRALAZINE) [Concomitant]
  9. VITAMIN B12 (CYANOCOBALAMIN) [Concomitant]
  10. IMODIUM AD (LOPERAMIDE HYDROCHLORIDE) [Concomitant]
  11. ISOSORBIDE (ISOSORBIDE) [Concomitant]

REACTIONS (2)
  - Nocturia [None]
  - Sleep apnoea syndrome [None]
